FAERS Safety Report 8275915-7 (Version None)
Quarter: 2012Q2

REPORT INFORMATION
  Report Type: 
  Country: None (occurrence: None)
  Receive Date: 20120412
  Receipt Date: 20120407
  Transmission Date: 20120825
  Serious: No
  Sender: FDA-Public Use
  Company Number: US-PFIZER INC-2012089135

PATIENT

DRUGS (3)
  1. NORVASC [Suspect]
     Dosage: 10 MG, UNK
  2. NORVASC [Suspect]
     Dosage: 5 MG, UNK
  3. NORVASC [Suspect]
     Dosage: 5 MG, (TAKING FOR 12 YEARS)

REACTIONS (2)
  - ABDOMINAL PAIN UPPER [None]
  - HEADACHE [None]
